FAERS Safety Report 10060617 (Version 1)
Quarter: 2014Q2

REPORT INFORMATION
  Report Type: Spontaneous
  Country: DE (occurrence: DE)
  Receive Date: 20140404
  Receipt Date: 20140404
  Transmission Date: 20141212
  Serious: Yes (Congenital Anomaly, Other)
  Sender: FDA-Public Use
  Company Number: DE-PFIZER INC-2014092413

PATIENT
  Sex: Male

DRUGS (5)
  1. VENLAFAXINE HCL [Suspect]
     Indication: DEPRESSION
     Dosage: 1. TRIMESTER, 150 MG, DAILY
     Route: 064
     Dates: start: 20130113, end: 2013
  2. VENLAFAXINE HCL [Suspect]
     Dosage: 2. TRIMESTER, 150 / 75 MG, ALTERNATING, DAILY
     Route: 064
     Dates: start: 2013, end: 2013
  3. VENLAFAXINE HCL [Suspect]
     Dosage: 3. TRIMESTER, 150 MG, DAILY
     Route: 064
     Dates: start: 2013, end: 20131016
  4. FOLIO FORTE [Concomitant]
     Indication: PROPHYLAXIS OF NEURAL TUBE DEFECT
     Dosage: 1. TRIMESTER, 0.8 MG, DAILY
     Route: 064
     Dates: start: 20130113, end: 2013
  5. FOLIO FORTE [Concomitant]
     Dosage: 0.4 MG, DAILY
     Route: 064
     Dates: start: 2013, end: 20131016

REACTIONS (2)
  - Maternal exposure during pregnancy [Recovering/Resolving]
  - Talipes [Recovering/Resolving]
